FAERS Safety Report 5606751-5 (Version None)
Quarter: 2008Q1

REPORT INFORMATION
  Report Type: 
  Country: None (occurrence: None)
  Receive Date: 20080125
  Receipt Date: 20080116
  Transmission Date: 20080703
  Serious: Yes (Hospitalization, Disabling)
  Sender: FDA-Public Use
  Company Number: 022829

PATIENT
  Age: 49 Year
  Sex: Female

DRUGS (7)
  1. ADDERALL 10 [Suspect]
     Dosage: 15 MG, TID
     Dates: start: 20060101, end: 20061101
  2. ADDERALL XR (DEXAMFETAMINE SULFATE, DEXAMFETAMINE SACCHARATE, AMFETAMI [Suspect]
  3. OMEGA 3  FISH OIL  (FISH OIL) [Concomitant]
  4. CENTRUM SILVER (ASCORBIC ACID, MINERALS NOS, VITAMINS NOS, VITAMIN B N [Concomitant]
  5. PAXIL [Concomitant]
  6. GARLIC  (GARLIC) [Concomitant]
  7. VITAMIN C (ASCORBIC ACID0 [Concomitant]

REACTIONS (1)
  - CARDIAC FAILURE [None]
